FAERS Safety Report 20988632 (Version 1)
Quarter: 2022Q2

REPORT INFORMATION
  Report Type: Spontaneous
  Country: CA (occurrence: CA)
  Receive Date: 20220621
  Receipt Date: 20220621
  Transmission Date: 20220721
  Serious: Yes (Hospitalization, Other)
  Sender: FDA-Public Use
  Company Number: CA-ELI_LILLY_AND_COMPANY-CA202206004964

PATIENT
  Sex: Male

DRUGS (29)
  1. OLANZAPINE [Suspect]
     Active Substance: OLANZAPINE
     Indication: Schizophrenia
     Dosage: 40 MG, UNKNOWN
     Route: 065
  2. OLANZAPINE [Suspect]
     Active Substance: OLANZAPINE
     Dosage: 15 MG, UNKNOWN
     Route: 065
  3. OLANZAPINE [Suspect]
     Active Substance: OLANZAPINE
     Dosage: 20 MG, UNKNOWN
     Route: 065
  4. AMISULPRIDE [Suspect]
     Active Substance: AMISULPRIDE
     Indication: Schizophrenia
     Dosage: 1200 MG, UNKNOWN
     Route: 065
  5. ARIPIPRAZOLE [Suspect]
     Active Substance: ARIPIPRAZOLE
     Indication: Schizophrenia
     Dosage: 30 MG, UNKNOWN
     Route: 065
  6. CITALOPRAM [Suspect]
     Active Substance: CITALOPRAM HYDROBROMIDE
     Indication: Schizophrenia
     Dosage: UNK UNK, UNKNOWN
     Route: 065
  7. CLOMIPRAMINE [Suspect]
     Active Substance: CLOMIPRAMINE
     Indication: Schizophrenia
     Dosage: 250 MG, UNKNOWN
     Route: 065
  8. CLOZAPINE [Suspect]
     Active Substance: CLOZAPINE
     Indication: Schizophrenia
     Dosage: 350 MG, UNKNOWN
     Route: 065
  9. FLUOXETINE [Suspect]
     Active Substance: FLUOXETINE HYDROCHLORIDE
     Indication: Schizophrenia
     Dosage: 80 MG, UNKNOWN
     Route: 065
  10. FLUPENTIXOL [Suspect]
     Active Substance: FLUPENTIXOL
     Indication: Schizophrenia
  11. GABAPENTIN [Suspect]
     Active Substance: GABAPENTIN
     Indication: Schizophrenia
     Dosage: 1600 MG, UNKNOWN
     Route: 065
  12. GABAPENTIN [Suspect]
     Active Substance: GABAPENTIN
     Dosage: 600 UNK
     Route: 065
  13. HALOPERIDOL [Suspect]
     Active Substance: HALOPERIDOL
     Indication: Schizophrenia
     Dosage: 5 MG, UNKNOWN
     Route: 065
  14. HALOPERIDOL [Suspect]
     Active Substance: HALOPERIDOL
     Dosage: 6 MG, UNKNOWN
     Route: 065
  15. LITHIUM CARBONATE [Suspect]
     Active Substance: LITHIUM CARBONATE
     Indication: Schizophrenia
     Dosage: 1800 MG, UNKNOWN
     Route: 065
  16. LITHIUM CARBONATE [Suspect]
     Active Substance: LITHIUM CARBONATE
     Dosage: 1050 MG, UNKNOWN
     Route: 065
  17. LOXAPINE [Suspect]
     Active Substance: LOXAPINE
     Indication: Schizophrenia
     Dosage: 200 MG, UNKNOWN
     Route: 065
  18. LOXAPINE [Suspect]
     Active Substance: LOXAPINE
     Dosage: 75 MG, UNKNOWN
     Route: 065
  19. LOXAPINE [Suspect]
     Active Substance: LOXAPINE
     Dosage: 50 MG, UNKNOWN
     Route: 065
  20. PERPHENAZINE [Suspect]
     Active Substance: PERPHENAZINE
     Indication: Schizophrenia
     Dosage: 32 MG, UNKNOWN
     Route: 065
  21. QUETIAPINE [Suspect]
     Active Substance: QUETIAPINE
     Indication: Schizophrenia
     Dosage: 600 MG, UNKNOWN
     Route: 048
  22. RISPERIDONE [Suspect]
     Active Substance: RISPERIDONE
     Indication: Schizophrenia
     Dosage: 8 MG, UNKNOWN
     Route: 065
  23. RISPERIDONE [Suspect]
     Active Substance: RISPERIDONE
     Dosage: 3 MG, UNKNOWN
     Route: 065
  24. RISPERIDONE [Suspect]
     Active Substance: RISPERIDONE
     Dosage: 4 MG, UNKNOWN
     Route: 065
  25. SAPHRIS [Suspect]
     Active Substance: ASENAPINE MALEATE
     Indication: Schizophrenia
     Dosage: UNK UNK, UNKNOWN
     Route: 065
  26. THIORIDAZINE [Suspect]
     Active Substance: THIORIDAZINE
     Indication: Schizophrenia
     Dosage: UNK UNK, UNKNOWN
     Route: 048
  27. TRIFLUOPERAZINE [Suspect]
     Active Substance: TRIFLUOPERAZINE HYDROCHLORIDE
     Indication: Schizophrenia
     Dosage: 50 MG, UNKNOWN
     Route: 065
  28. ZELDOX [Suspect]
     Active Substance: ZIPRASIDONE
     Indication: Schizophrenia
     Dosage: 100 MG, UNKNOWN
     Route: 065
  29. VALPROATE SODIUM [Concomitant]
     Active Substance: VALPROATE SODIUM
     Indication: Schizophrenia

REACTIONS (13)
  - Toxicity to various agents [Unknown]
  - Antipsychotic drug level below therapeutic [Unknown]
  - Disinhibition [Unknown]
  - Therapeutic product effect variable [Unknown]
  - Euphoric mood [Unknown]
  - Obsessive-compulsive disorder [Unknown]
  - Suicide attempt [Unknown]
  - Increased appetite [Unknown]
  - Weight increased [Unknown]
  - Akathisia [Unknown]
  - Leukopenia [Unknown]
  - Prescribed overdose [Unknown]
  - Drug ineffective [Unknown]
